FAERS Safety Report 21191688 (Version 3)
Quarter: 2022Q4

REPORT INFORMATION
  Report Type: Spontaneous
  Country: US (occurrence: US)
  Receive Date: 20220809
  Receipt Date: 20221228
  Transmission Date: 20230113
  Serious: No
  Sender: FDA-Public Use
  Company Number: US-BRISTOL-MYERS SQUIBB COMPANY-2022-087413

PATIENT
  Age: 65 Year
  Sex: Female
  Weight: 83.915 kg

DRUGS (2)
  1. POMALYST [Suspect]
     Active Substance: POMALIDOMIDE
     Indication: Plasma cell myeloma
     Dosage: D1-21 Q28 DAYS
     Route: 048
     Dates: start: 20220721
  2. POMALYST [Suspect]
     Active Substance: POMALIDOMIDE
     Dosage: D1-21 Q28 DAYS
     Route: 048
     Dates: start: 20221128

REACTIONS (3)
  - White blood cell count decreased [Not Recovered/Not Resolved]
  - Appetite disorder [Recovering/Resolving]
  - Autonomic nervous system imbalance [Unknown]
